FAERS Safety Report 6677704-3 (Version None)
Quarter: 2010Q2

REPORT INFORMATION
  Report Type: 
  Country: None (occurrence: None)
  Receive Date: 20100412
  Receipt Date: 20100331
  Transmission Date: 20101027
  Serious: Yes (Death)
  Sender: FDA-Public Use
  Company Number: GB-TEVA-227241ISR

PATIENT
  Age: 56 Year
  Sex: Male
  Weight: 82.8 kg

DRUGS (2)
  1. RISPERIDONE [Suspect]
     Indication: PSYCHOTIC DISORDER
     Route: 048
     Dates: start: 20080417
  2. VENLAFAXINE HCL [Suspect]
     Indication: PSYCHOTIC DISORDER
     Route: 048
     Dates: start: 20090108

REACTIONS (2)
  - CARDIOTOXICITY [None]
  - MYOCARDIAL ISCHAEMIA [None]
